FAERS Safety Report 9869547 (Version 1)
Quarter: 2014Q1

REPORT INFORMATION
  Report Type: Spontaneous
  Country: US (occurrence: US)
  Receive Date: 20140205
  Receipt Date: 20140205
  Transmission Date: 20141002
  Serious: No
  Sender: FDA-Public Use
  Company Number: US-PFIZER INC-2014030610

PATIENT
  Sex: Female

DRUGS (1)
  1. VFEND [Suspect]
     Indication: ASPERGILLUS INFECTION
     Dosage: UNK
     Dates: end: 201401

REACTIONS (6)
  - Withdrawal syndrome [Unknown]
  - Activities of daily living impaired [Unknown]
  - Asthenia [Unknown]
  - Somnolence [Unknown]
  - Feeling abnormal [Unknown]
  - Depressed mood [Unknown]
